FAERS Safety Report 4703959-8 (Version None)
Quarter: 2005Q2

REPORT INFORMATION
  Report Type: 
  Country: None (occurrence: None)
  Receive Date: 20050630
  Receipt Date: 20050309
  Transmission Date: 20051028
  Serious: Yes (Hospitalization, Disabling)
  Sender: FDA-Public Use
  Company Number: US-MERCK-0503USA01749

PATIENT
  Age: 63 Year
  Sex: Female
  Weight: 91 kg

DRUGS (9)
  1. VIOXX [Suspect]
     Indication: PAIN
     Route: 048
     Dates: start: 20000101, end: 20040501
  2. FOLIC ACID [Concomitant]
     Route: 065
  3. PLAQUENIL [Concomitant]
     Route: 065
  4. CATAPRES [Concomitant]
     Route: 065
  5. PREDNISONE [Concomitant]
     Route: 065
  6. TYLENOL [Concomitant]
     Route: 065
  7. AMBIEN [Concomitant]
     Route: 065
  8. ENBREL [Concomitant]
     Route: 065
  9. METHOTREXATE [Concomitant]
     Route: 065

REACTIONS (16)
  - ABDOMINAL DISTENSION [None]
  - ABDOMINAL PAIN [None]
  - CEREBROVASCULAR ACCIDENT [None]
  - DEPRESSION [None]
  - DIZZINESS [None]
  - FLATULENCE [None]
  - GASTROINTESTINAL MOTILITY DISORDER [None]
  - GASTROOESOPHAGEAL REFLUX DISEASE [None]
  - HEADACHE [None]
  - HYPERTENSION [None]
  - OEDEMA [None]
  - PAIN [None]
  - POLLAKIURIA [None]
  - SINUS DISORDER [None]
  - VISUAL ACUITY REDUCED [None]
  - WEIGHT INCREASED [None]
